FAERS Safety Report 17813080 (Version 1)
Quarter: 2020Q2

REPORT INFORMATION
  Report Type: Spontaneous
  Country: US (occurrence: US)
  Receive Date: 20200521
  Receipt Date: 20200521
  Transmission Date: 20200714
  Serious: No
  Sender: FDA-Public Use
  Company Number: US-BIOGEN-2020BI00876653

PATIENT
  Age: 48 Year
  Sex: Female

DRUGS (1)
  1. TECFIDERA [Suspect]
     Active Substance: DIMETHYL FUMARATE
     Indication: MULTIPLE SCLEROSIS
     Route: 048
     Dates: start: 20170501

REACTIONS (9)
  - Malaise [Recovered/Resolved]
  - Feeling abnormal [Recovered/Resolved]
  - Headache [Unknown]
  - Migraine [Unknown]
  - Hot flush [Recovered/Resolved]
  - Multiple sclerosis [Recovered/Resolved]
  - Decreased immune responsiveness [Recovered/Resolved]
  - Hyperhidrosis [Recovered/Resolved]
  - Oral viral infection [Recovered/Resolved]

NARRATIVE: CASE EVENT DATE: 20170501
